FAERS Safety Report 4797257-4 (Version None)
Quarter: 2005Q4

REPORT INFORMATION
  Report Type: 
  Country: None (occurrence: None)
  Receive Date: 20051011
  Receipt Date: 20051011
  Transmission Date: 20060501
  Serious: Yes (Hospitalization)
  Sender: FDA-Public Use
  Company Number: None

PATIENT
  Age: 64 Year
  Sex: Male
  Weight: 54.9 kg

DRUGS (2)
  1. FOSINOPRIL SODIUM [Suspect]
     Indication: DIABETES MELLITUS
     Dosage: 40MG, 40MG QD ORAL
     Route: 048
     Dates: start: 20041216, end: 20050705
  2. FOSINOPRIL SODIUM [Suspect]
     Indication: HYPERTENSION
     Dosage: 40MG, 40MG QD ORAL
     Route: 048
     Dates: start: 20041216, end: 20050705

REACTIONS (1)
  - ANGIONEUROTIC OEDEMA [None]
